FAERS Safety Report 5803148-X (Version None)
Quarter: 2008Q2

REPORT INFORMATION
  Report Type: 
  Country: None (occurrence: None)
  Receive Date: 20080626
  Receipt Date: 20080429
  Transmission Date: 20081010
  Serious: Yes (Hospitalization)
  Sender: FDA-Public Use
  Company Number: VISP-PR-0804S-0256

PATIENT
  Age: 71 Year
  Sex: Female
  Weight: 143.3 kg

DRUGS (5)
  1. VISIPAQUE [Suspect]
     Indication: DRUG USE FOR UNKNOWN INDICATION
     Dosage: 420 ML, SINGLE DOSE, I.A.
     Route: 013
     Dates: start: 20080331, end: 20080331
  2. CANGRELOR OR CLOPIDOGREL (BLINDED STUDY) [Concomitant]
  3. CLOPIDOGREL [Concomitant]
  4. UNFRACTIONATED HEPARIN [Concomitant]
  5. LISINOPRIL [Concomitant]

REACTIONS (1)
  - RENAL FAILURE ACUTE [None]
